FAERS Safety Report 25218189 (Version 1)
Quarter: 2025Q2

REPORT INFORMATION
  Report Type: Spontaneous
  Country: US (occurrence: US)
  Receive Date: 20250421
  Receipt Date: 20250421
  Transmission Date: 20250717
  Serious: Yes (Hospitalization)
  Sender: SANOFI AVENTIS
  Company Number: US-SA-2025SA112862

PATIENT
  Age: 72 Year
  Sex: Female
  Weight: 116.36 kg

DRUGS (6)
  1. DUPIXENT [Suspect]
     Active Substance: DUPILUMAB
     Indication: Dermatitis atopic
     Dosage: 300 MG, QOW
     Route: 058
     Dates: start: 20240610
  2. ROSUVASTATIN [Concomitant]
     Active Substance: ROSUVASTATIN
  3. LABETALOL [Concomitant]
     Active Substance: LABETALOL
  4. VITAMIN D3 [Concomitant]
     Active Substance: CHOLECALCIFEROL
  5. TYLENOL [Concomitant]
     Active Substance: ACETAMINOPHEN
  6. BIOTIN [Concomitant]
     Active Substance: BIOTIN

REACTIONS (1)
  - Skin swelling [Recovered/Resolved]

NARRATIVE: CASE EVENT DATE: 20250416
